FAERS Safety Report 6911591-0 (Version None)
Quarter: 2010Q3

REPORT INFORMATION
  Report Type: 
  Country: None (occurrence: None)
  Receive Date: 20100806
  Receipt Date: 20100726
  Transmission Date: 20110219
  Serious: Yes (Other)
  Sender: FDA-Public Use
  Company Number: ES-PFIZER INC-2010093632

PATIENT
  Age: 30 Year
  Sex: Male

DRUGS (1)
  1. CHAMPIX [Suspect]
     Indication: TOBACCO ABUSE
     Dosage: 0.5 MG, UNK
     Route: 065
     Dates: start: 20100202, end: 20100308

REACTIONS (1)
  - TRIGEMINAL NEURALGIA [None]
